FAERS Safety Report 4938038-8 (Version None)
Quarter: 2006Q1

REPORT INFORMATION
  Report Type: 
  Country: None (occurrence: None)
  Receive Date: 20060309
  Receipt Date: 20050706
  Transmission Date: 20060701
  Serious: No
  Sender: FDA-Public Use
  Company Number: US-BRISTOL-MYERS SQUIBB COMPANY-13115134

PATIENT
  Age: 17 Year
  Sex: Female

DRUGS (3)
  1. MONISTAT-1 VAG OINT 6.5% [Suspect]
     Indication: VULVOVAGINAL MYCOTIC INFECTION
     Route: 067
  2. ZYRTEC [Concomitant]
  3. ORTHO TRI-CYCLEN [Concomitant]

REACTIONS (3)
  - HYPERSENSITIVITY [None]
  - LOCALISED OEDEMA [None]
  - VAGINAL PAIN [None]
